FAERS Safety Report 22152536 (Version 1)
Quarter: 2023Q1

REPORT INFORMATION
  Report Type: Spontaneous
  Country: None (occurrence: ES)
  Receive Date: 20230329
  Receipt Date: 20230329
  Transmission Date: 20230417
  Serious: Yes (Hospitalization)
  Sender: FDA-Public Use
  Company Number: ES-Canton Laboratories, LLC-2139675

PATIENT
  Age: 75 Year
  Sex: Female

DRUGS (2)
  1. NAPROSYN [Suspect]
     Active Substance: NAPROXEN
     Indication: Pain
     Route: 048
     Dates: start: 20221017
  2. AMOXICILLIN [Suspect]
     Active Substance: AMOXICILLIN
     Route: 048
     Dates: start: 20221017

REACTIONS (5)
  - Rash [Unknown]
  - Anaphylactic shock [Unknown]
  - Hypoxia [Unknown]
  - Angioedema [Unknown]
  - Depressed level of consciousness [Unknown]

NARRATIVE: CASE EVENT DATE: 20221017
